FAERS Safety Report 13827413 (Version 1)
Quarter: 2017Q3

REPORT INFORMATION
  Report Type: Spontaneous
  Country: US (occurrence: US)
  Receive Date: 20170802
  Receipt Date: 20170802
  Transmission Date: 20171127
  Serious: Yes (Other)
  Sender: FDA-Public Use
  Company Number: US-ROCHE-649422

PATIENT
  Age: 18 Year
  Sex: Female

DRUGS (9)
  1. CITRACAL [Concomitant]
     Active Substance: CALCIUM CITRATE
     Route: 065
  2. ALLEGRA [Concomitant]
     Active Substance: FEXOFENADINE HYDROCHLORIDE
     Dosage: DRUG: ALLEGRA 180
     Route: 065
  3. VITAMIN D [Concomitant]
     Active Substance: CHOLECALCIFEROL
     Dosage: DRUG: VITAMIN D
     Route: 065
  4. SINGULAIR [Concomitant]
     Active Substance: MONTELUKAST SODIUM
     Dosage: DRUG: SINGULAIR 10 MG
     Route: 065
  5. ADVAIR HFA [Concomitant]
     Active Substance: FLUTICASONE PROPIONATE\SALMETEROL XINAFOATE
     Dosage: DRUG: ADVAIR 250/50; TAKEN FOR ABOUT TEN YEARS.
     Route: 065
  6. RHINOCORT [Concomitant]
     Active Substance: BUDESONIDE
     Route: 065
  7. BONIVA [Suspect]
     Active Substance: IBANDRONATE SODIUM
     Indication: OSTEOPOROSIS
     Route: 048
  8. FORTICAL NASAL SPRAY [Concomitant]
     Route: 065
  9. SPRINTEC [Concomitant]
     Active Substance: ETHINYL ESTRADIOL\NORGESTIMATE
     Dosage: DRUG: SPRINTEK BC
     Route: 065

REACTIONS (8)
  - Vomiting [Recovering/Resolving]
  - Pharyngeal oedema [Recovering/Resolving]
  - Sensory disturbance [Recovering/Resolving]
  - Back pain [Recovering/Resolving]
  - Joint swelling [Recovering/Resolving]
  - Nausea [Recovering/Resolving]
  - Dyspnoea [Recovering/Resolving]
  - Arthralgia [Recovering/Resolving]

NARRATIVE: CASE EVENT DATE: 20090804
